FAERS Safety Report 20206676 (Version 3)
Quarter: 2022Q1

REPORT INFORMATION
  Report Type: Spontaneous
  Country: US (occurrence: US)
  Receive Date: 20211220
  Receipt Date: 20220114
  Transmission Date: 20220424
  Serious: Yes (Other)
  Sender: FDA-Public Use
  Company Number: US-009507513-2112USA006110

PATIENT
  Age: 53 Year
  Sex: Female
  Weight: 66.667 kg

DRUGS (1)
  1. KEYTRUDA [Suspect]
     Active Substance: PEMBROLIZUMAB
     Indication: Squamous cell carcinoma of the cervix
     Dosage: 400 MILLIGRAM
     Route: 042
     Dates: start: 201905, end: 20210401

REACTIONS (11)
  - Knee arthroplasty [Unknown]
  - Knee arthroplasty [Unknown]
  - Immune-mediated arthritis [Unknown]
  - Meniscal degeneration [Unknown]
  - Staphylococcus test positive [Unknown]
  - Renal atrophy [Unknown]
  - Synovitis [Unknown]
  - Joint effusion [Unknown]
  - Malignant neoplasm progression [Unknown]
  - Constipation [Unknown]
  - Hypothyroidism [Unknown]

NARRATIVE: CASE EVENT DATE: 20190821
